FAERS Safety Report 6502020-X (Version None)
Quarter: 2009Q4

REPORT INFORMATION
  Report Type: 
  Country: None (occurrence: None)
  Receive Date: 20091214
  Receipt Date: 20091130
  Transmission Date: 20100525
  Serious: Yes (Other)
  Sender: FDA-Public Use
  Company Number: 1000010644

PATIENT
  Age: 44 Year
  Sex: Female

DRUGS (12)
  1. ESCITALOPRAM [Suspect]
     Indication: DEPRESSION
     Dosage: 1 DOSAGE FORMS (1 DOSAGE FORMS,1 IN 1 D)
     Dates: end: 20091015
  2. VENLAFAXINE [Suspect]
     Indication: DEPRESSION
     Dosage: 150 MG (150 MG,1 IN 1 D)
     Dates: start: 20091021, end: 20091021
  3. ATARAX [Suspect]
     Indication: DEPRESSION
     Dosage: 150 MG (150 MG,1 IN 1 D)
     Dates: end: 20091015
  4. EFFEXOR [Concomitant]
  5. NOCTAMIDE [Concomitant]
  6. GINKOR FORT [Concomitant]
  7. XANAX [Concomitant]
  8. TEGRETOL [Concomitant]
  9. ZYPREXA [Concomitant]
  10. PARKINANE [Concomitant]
  11. RISPERDAL [Concomitant]
  12. DEPAMIDE [Concomitant]

REACTIONS (5)
  - DYSPNOEA [None]
  - ERYTHEMA [None]
  - PHYTOTHERAPY [None]
  - PRODUCT SUBSTITUTION ISSUE [None]
  - PRURITUS [None]
